FAERS Safety Report 25527722 (Version 1)
Quarter: 2025Q3

REPORT INFORMATION
  Report Type: Spontaneous
  Country: GB (occurrence: GB)
  Receive Date: 20250708
  Receipt Date: 20250708
  Transmission Date: 20251020
  Serious: Yes (Life-Threatening, Hospitalization, Other)
  Sender: NOVO NORDISK
  Company Number: None

PATIENT
  Age: 23 Year
  Sex: Female
  Weight: 118 kg

DRUGS (1)
  1. OZEMPIC [Suspect]
     Active Substance: SEMAGLUTIDE
     Indication: Weight control
     Dates: start: 20200801, end: 20211201

REACTIONS (6)
  - Medication error [Unknown]
  - Cholelithiasis [Recovered/Resolved with Sequelae]
  - Pancreatitis [Recovered/Resolved]
  - Haematemesis [Recovered/Resolved]
  - Hepatic failure [Recovered/Resolved]
  - Product use in unapproved indication [Recovered/Resolved]

NARRATIVE: CASE EVENT DATE: 20200801
